FAERS Safety Report 9936594 (Version 1)
Quarter: 2014Q1

REPORT INFORMATION
  Report Type: Spontaneous
  Country: US (occurrence: US)
  Receive Date: 20140228
  Receipt Date: 20140228
  Transmission Date: 20141002
  Serious: No
  Sender: FDA-Public Use
  Company Number: US-AMGEN-USASP2014007571

PATIENT
  Age: 45 Year
  Sex: Female
  Weight: 73.46 kg

DRUGS (8)
  1. ENBREL [Suspect]
     Indication: PRODUCT USED FOR UNKNOWN INDICATION
     Dosage: 50 MG, QWK
     Route: 058
  2. EFFEXOR [Concomitant]
     Dosage: 100 MG, UNK
  3. ZOMIG [Concomitant]
     Dosage: 5 MG, UNK
  4. METHOTREXATE [Concomitant]
     Dosage: 2.5 MG, UNK
  5. NORVASC [Concomitant]
     Dosage: 5 MG, UNK
  6. LISINOPRIL [Concomitant]
     Dosage: 40 MG, UNK
  7. FOLIC ACID [Concomitant]
     Dosage: UNK
  8. IBUPROFEN                          /00109205/ [Concomitant]
     Dosage: 100 MG, UNK

REACTIONS (1)
  - Rheumatoid arthritis [Unknown]
